FAERS Safety Report 4395291-X (Version None)
Quarter: 2004Q3

REPORT INFORMATION
  Report Type: 
  Country: None (occurrence: None)
  Receive Date: 20040707
  Receipt Date: 20040621
  Transmission Date: 20050211
  Serious: Yes (Other)
  Sender: FDA-Public Use
  Company Number: DSA_24581_2004

PATIENT
  Age: 59 Year
  Sex: Male

DRUGS (1)
  1. ORFIDAL [Suspect]
     Indication: INSOMNIA
     Dosage: 1 MG Q DAY PO
     Route: 048
     Dates: start: 20001201, end: 20031201

REACTIONS (2)
  - HEPATOTOXICITY [None]
  - NECROSIS [None]
